FAERS Safety Report 23975328 (Version 2)
Quarter: 2024Q2

REPORT INFORMATION
  Report Type: Spontaneous
  Country: US (occurrence: US)
  Receive Date: 20240614
  Receipt Date: 20240618
  Transmission Date: 20240716
  Serious: No
  Sender: FDA-Public Use
  Company Number: US-TEVA-VS-3206581

PATIENT
  Age: 50 Year
  Sex: Female

DRUGS (3)
  1. AUSTEDO [Suspect]
     Active Substance: DEUTETRABENAZINE
     Indication: Huntington^s disease
     Dosage: 3 TABLETS BY MOUTH TWICE DAILY
     Route: 048
     Dates: start: 2019
  2. AUSTEDO [Suspect]
     Active Substance: DEUTETRABENAZINE
     Indication: Huntington^s disease
     Dosage: 2 TABLETS
     Route: 048
  3. AUSTEDO [Suspect]
     Active Substance: DEUTETRABENAZINE
     Indication: Huntington^s disease
     Dosage: 2 TABLETS EVERY?MORNING AND 3 TABLETS EVERY EVENING X 1 MONTH
     Route: 048

REACTIONS (7)
  - Movement disorder [Unknown]
  - Sedation complication [Unknown]
  - Psychomotor hyperactivity [Unknown]
  - Drooling [Unknown]
  - Dry mouth [Unknown]
  - Off label use [Unknown]
  - Therapy change [Unknown]

NARRATIVE: CASE EVENT DATE: 20240101
